FAERS Safety Report 10921889 (Version 2)
Quarter: 2015Q1

REPORT INFORMATION
  Report Type: Spontaneous
  Country: AU (occurrence: AU)
  Receive Date: 20150317
  Receipt Date: 20150319
  Transmission Date: 20150721
  Serious: Yes (Death, Hospitalization)
  Sender: FDA-Public Use
  Company Number: PHHY2015AU031435

PATIENT
  Age: 30 Year
  Sex: Male

DRUGS (3)
  1. CICLOSPORIN [Suspect]
     Active Substance: CYCLOSPORINE
     Indication: PSORIASIS
     Route: 065
  2. METHOTREXATE [Suspect]
     Active Substance: METHOTREXATE
     Indication: PSORIASIS
     Route: 065
  3. ETANERCEPT [Suspect]
     Active Substance: ETANERCEPT
     Indication: PSORIASIS
     Route: 065

REACTIONS (7)
  - Hepatosplenic T-cell lymphoma [Fatal]
  - Pyrexia [Fatal]
  - Splenomegaly [Fatal]
  - Weight decreased [Fatal]
  - Pancytopenia [Fatal]
  - Contusion [Fatal]
  - Lethargy [Fatal]
